FAERS Safety Report 7082072 (Version 4)
Quarter: 2020Q3

REPORT INFORMATION
  Report Type: Report from Study
  Country: US (occurrence: US)
  Receive Date: 20090814
  Receipt Date: 20090831
  Transmission Date: 20201104
  Serious: Yes (Hospitalization)
  Sender: FDA-Public Use
  Company Number: US-WYE-H10504109

PATIENT
  Age: 72 Year
  Sex: Female
  Weight: 79.9 kg

DRUGS (13)
  1. PRAVACHOL [Concomitant]
     Active Substance: PRAVASTATIN SODIUM
     Dosage: 20 (UNITS NOT PROVIDED) PER DAY
     Route: 065
  2. CALCIUM WITH VITAMIN D [Concomitant]
     Active Substance: CALCIUM\VITAMIN D
     Route: 065
  3. JANUVIA [Concomitant]
     Active Substance: SITAGLIPTIN PHOSPHATE
     Dosage: 50 (UNITS NOT PROVIDED) PER DAY
     Route: 065
  4. AMBIEN [Concomitant]
     Active Substance: ZOLPIDEM TARTRATE
     Route: 065
  5. EXEMESTANE. [Suspect]
     Active Substance: EXEMESTANE
     Indication: BREAST CANCER METASTATIC
     Route: 048
     Dates: start: 20090708, end: 20090806
  6. DURAGESIC [Concomitant]
     Active Substance: FENTANYL
     Dosage: 25 MCG PER DAY
     Route: 065
  7. BOSUTINIB [Suspect]
     Active Substance: BOSUTINIB
     Indication: BREAST CANCER METASTATIC
     Route: 048
     Dates: start: 20090708, end: 20090806
  8. ATENOLOL. [Concomitant]
     Active Substance: ATENOLOL
     Dosage: 50 (UNITS NOT PROVIDED) PER DAY
     Route: 065
  9. GLIPIZIDE. [Concomitant]
     Active Substance: GLIPIZIDE
     Dosage: 5 (UNITS NOT PROVIDED) EVERY DAY
     Route: 065
  10. LOTREL [Concomitant]
     Active Substance: AMLODIPINE BESYLATE\BENAZEPRIL HYDROCHLORIDE
     Dosage: 10/20 (UNITS NOT PROVIDED) ONE DAILY
     Route: 065
  11. ACETAMINOPHEN\HYDROCODONE BITARTRATE [Concomitant]
     Active Substance: ACETAMINOPHEN\HYDROCODONE BITARTRATE
     Route: 065
  12. ACETAMINOPHEN\HYDROCODONE BITARTRATE [Concomitant]
     Active Substance: ACETAMINOPHEN\HYDROCODONE BITARTRATE
     Dosage: ONE TAB TID PRN
     Route: 065
  13. TRAMADOL HYDROCHLORIDE. [Concomitant]
     Active Substance: TRAMADOL HYDROCHLORIDE
     Dosage: 50 MG ONE TAB TID PRN
     Route: 065

REACTIONS (2)
  - Fluid overload [Recovered/Resolved]
  - Dyspnoea [Recovered/Resolved]

NARRATIVE: CASE EVENT DATE: 20090801
